FAERS Safety Report 18180743 (Version 1)
Quarter: 2020Q3

REPORT INFORMATION
  Report Type: Spontaneous
  Country: US (occurrence: US)
  Receive Date: 20200821
  Receipt Date: 20200821
  Transmission Date: 20201103
  Serious: No
  Sender: FDA-Public Use
  Company Number: None

PATIENT
  Age: 52 Year
  Sex: Male
  Weight: 103.5 kg

DRUGS (6)
  1. MSM [Concomitant]
     Active Substance: DIMETHYL SULFONE
  2. DOXYCYCLINE. [Concomitant]
     Active Substance: DOXYCYCLINE
  3. VITAMIN C [Concomitant]
     Active Substance: ASCORBIC ACID
  4. MULTIVITAMINS [Concomitant]
     Active Substance: VITAMINS
  5. ALEVE [Concomitant]
     Active Substance: NAPROXEN SODIUM
  6. PRETORIA FIELDS HAND SANITIZER [Suspect]
     Active Substance: ALCOHOL
     Indication: INFECTION PROPHYLAXIS
     Dates: start: 20200801, end: 20200817

REACTIONS (3)
  - Product formulation issue [None]
  - Nausea [None]
  - Blood methanol [None]

NARRATIVE: CASE EVENT DATE: 20200816
